APPROVED DRUG PRODUCT: TOLVAPTAN
Active Ingredient: TOLVAPTAN
Strength: 30MG
Dosage Form/Route: TABLET;ORAL
Application: A206119 | Product #002 | TE Code: AB1
Applicant: PH HEALTH LTD
Approved: Feb 15, 2022 | RLD: No | RS: No | Type: RX